FAERS Safety Report 18151860 (Version 1)
Quarter: 2020Q3

REPORT INFORMATION
  Report Type: Spontaneous
  Country: US (occurrence: US)
  Receive Date: 20200814
  Receipt Date: 20200814
  Transmission Date: 20201103
  Serious: Yes (Death, Disabling, Other)
  Sender: FDA-Public Use
  Company Number: US-PURDUE-USA-2020-0161369

PATIENT
  Sex: Female

DRUGS (2)
  1. OXYCONTIN [Suspect]
     Active Substance: OXYCODONE HYDROCHLORIDE
     Indication: PRODUCT USED FOR UNKNOWN INDICATION
     Dosage: 80 MG, (120 OR 4 TAB DAILY
     Route: 048
     Dates: start: 1999, end: 200203
  2. OXYIR [Suspect]
     Active Substance: OXYCODONE HYDROCHLORIDE
     Indication: PRODUCT USED FOR UNKNOWN INDICATION
     Dosage: 30 MG, DAILY (90 OR 3 PER DAY)
     Route: 048
     Dates: start: 1999, end: 200203

REACTIONS (8)
  - Imprisonment [Unknown]
  - Drug withdrawal syndrome [Unknown]
  - Depression [Unknown]
  - Quality of life decreased [Unknown]
  - Overdose [Fatal]
  - Emotional distress [Unknown]
  - Pain [Unknown]
  - Drug dependence [Unknown]

NARRATIVE: CASE EVENT DATE: 1999
